FAERS Safety Report 4324638-5 (Version None)
Quarter: 2004Q1

REPORT INFORMATION
  Report Type: 
  Country: None (occurrence: None)
  Receive Date: 20040322
  Receipt Date: 20040308
  Transmission Date: 20041129
  Serious: Yes (Death)
  Sender: FDA-Public Use
  Company Number: BR-JNJFOC-20040301629

PATIENT
  Age: 40 Year
  Sex: Female

DRUGS (1)
  1. LEUSTATIN [Suspect]
     Indication: CASTLEMAN'S DISEASE
     Dosage: 0.1 MG/KG, 1 IN 1 DAY, INJECTION

REACTIONS (5)
  - BLOOD ALBUMIN INCREASED [None]
  - ERYTHEMA MULTIFORME [None]
  - HERPES VIRUS INFECTION [None]
  - MULTI-ORGAN FAILURE [None]
  - PELVIC MASS [None]
